FAERS Safety Report 21270699 (Version 1)
Quarter: 2022Q3

REPORT INFORMATION
  Report Type: Spontaneous
  Country: None (occurrence: FR)
  Receive Date: 20220830
  Receipt Date: 20220830
  Transmission Date: 20221027
  Serious: Yes (Life-Threatening)
  Sender: FDA-Public Use
  Company Number: FR-Air Products and Chemicals, Inc. -2132384

PATIENT
  Age: 53 Year
  Sex: Male

DRUGS (1)
  1. OXYGEN [Suspect]
     Active Substance: OXYGEN
     Route: 050
     Dates: start: 20190511

REACTIONS (1)
  - Tobacco interaction [None]
